FAERS Safety Report 25789040 (Version 1)
Quarter: 2025Q3

REPORT INFORMATION
  Report Type: Report from Study
  Country: CA (occurrence: CA)
  Receive Date: 20250911
  Receipt Date: 20250911
  Transmission Date: 20251020
  Serious: Yes (Hospitalization)
  Sender: TAKEDA
  Company Number: CA-TAKEDA-2021TUS009106

PATIENT
  Age: 55 Year
  Sex: Female

DRUGS (15)
  1. HUMAN IMMUNOGLOBULIN G [Suspect]
     Active Substance: HUMAN IMMUNOGLOBULIN G
     Indication: Secondary immunodeficiency
     Dosage: 10 GRAM, 1/WEEK
  2. HUMAN IMMUNOGLOBULIN G [Suspect]
     Active Substance: HUMAN IMMUNOGLOBULIN G
     Dosage: 12 GRAM, 1/WEEK
     Dates: start: 20201030
  3. HUMAN IMMUNOGLOBULIN G [Suspect]
     Active Substance: HUMAN IMMUNOGLOBULIN G
  4. PREGABALIN [Concomitant]
     Active Substance: PREGABALIN
  5. METHOTREXATE [Concomitant]
     Active Substance: METHOTREXATE
  6. RIVAROXABAN [Concomitant]
     Active Substance: RIVAROXABAN
  7. FOLIC ACID [Concomitant]
     Active Substance: FOLIC ACID
  8. SPIRONOLACTONE [Concomitant]
     Active Substance: SPIRONOLACTONE
  9. DIGOXIN [Concomitant]
     Active Substance: DIGOXIN
  10. ETANERCEPT [Concomitant]
     Active Substance: ETANERCEPT
  11. BISOPROLOL [Concomitant]
     Active Substance: BISOPROLOL
  12. POTASSIUM [Concomitant]
     Active Substance: POTASSIUM
  13. MAGNESIUM [Concomitant]
     Active Substance: MAGNESIUM
  14. ACYCLOVIR [Concomitant]
     Active Substance: ACYCLOVIR
  15. SPIRIVA [Concomitant]
     Active Substance: TIOTROPIUM BROMIDE MONOHYDRATE

REACTIONS (3)
  - Infection [Unknown]
  - Blood test abnormal [Unknown]
  - Product distribution issue [Unknown]

NARRATIVE: CASE EVENT DATE: 20201030
